FAERS Safety Report 6654345-5 (Version None)
Quarter: 2010Q1

REPORT INFORMATION
  Report Type: 
  Country: None (occurrence: None)
  Receive Date: 20100326
  Receipt Date: 20100319
  Transmission Date: 20100710
  Serious: Yes (Hospitalization, Other)
  Sender: FDA-Public Use
  Company Number: US-AMGEN-QUU397819

PATIENT
  Sex: Female

DRUGS (5)
  1. ENBREL [Suspect]
     Indication: PSORIASIS
     Route: 058
     Dates: start: 20090621
  2. FLUOCINONIDE [Concomitant]
  3. ALLEGRA [Concomitant]
  4. DESONIDE [Concomitant]
     Dates: start: 20090301
  5. CLOBETASOL PROPIONATE [Concomitant]

REACTIONS (7)
  - HOSPITALISATION [None]
  - LYMPHADENOPATHY [None]
  - OCULAR HYPERAEMIA [None]
  - OROPHARYNGEAL PAIN [None]
  - PAIN [None]
  - PHARYNGITIS STREPTOCOCCAL [None]
  - PREMATURE SEPARATION OF PLACENTA [None]
